FAERS Safety Report 7980197-7 (Version None)
Quarter: 2011Q4

REPORT INFORMATION
  Report Type: 
  Country: None (occurrence: None)
  Receive Date: 20111214
  Receipt Date: 20111206
  Transmission Date: 20120403
  Serious: Yes (Hospitalization)
  Sender: FDA-Public Use
  Company Number: US-ABBOTT-11P-163-0881303-00

PATIENT
  Age: 60 Year
  Sex: Female

DRUGS (15)
  1. VERAPAMIL [Concomitant]
     Indication: RAYNAUD'S PHENOMENON
  2. VALTREX [Concomitant]
     Indication: HERPES VIRUS INFECTION
  3. IMITREX [Concomitant]
     Indication: HEADACHE
  4. ZETIA [Concomitant]
     Indication: BLOOD CHOLESTEROL INCREASED
  5. GEODON [Concomitant]
     Indication: PRODUCT USED FOR UNKNOWN INDICATION
     Dosage: AT BEDTIME
  6. COUMADIN [Concomitant]
     Indication: PRODUCT USED FOR UNKNOWN INDICATION
  7. CLONAZEPAM [Concomitant]
     Indication: BIPOLAR DISORDER
  8. NORCO [Concomitant]
     Indication: BACK PAIN
     Dosage: 10/325
  9. NORCO [Concomitant]
     Indication: PAIN IN EXTREMITY
  10. CELEBREX [Concomitant]
     Indication: ANKYLOSING SPONDYLITIS
  11. HUMIRA [Suspect]
     Indication: ANKYLOSING SPONDYLITIS
     Route: 058
     Dates: start: 20090101
  12. TOPAMAX [Concomitant]
     Indication: BIPOLAR DISORDER
     Dosage: AT BEDTIME
  13. PRILOSEC [Concomitant]
     Indication: ULCER
  14. SPIRONOLACTONE [Concomitant]
     Indication: HYPERTENSION
  15. RESTASIS [Concomitant]
     Indication: DRY EYE

REACTIONS (3)
  - BRONCHITIS [None]
  - SINUSITIS [None]
  - PULMONARY EMBOLISM [None]
